FAERS Safety Report 12724536 (Version 1)
Quarter: 2016Q3

REPORT INFORMATION
  Report Type: Spontaneous
  Country: NP (occurrence: NP)
  Receive Date: 20160908
  Receipt Date: 20160908
  Transmission Date: 20161109
  Serious: Yes (Hospitalization)
  Sender: FDA-Public Use
  Company Number: NP-ALKEM LABORATORIES LIMITED-NP-ALKEM-2016-00164

PATIENT
  Age: 23 Year
  Sex: Female

DRUGS (1)
  1. AMLODIPINE BESYLATE. [Suspect]
     Active Substance: AMLODIPINE BESYLATE
     Indication: SUICIDAL IDEATION
     Dosage: 220 MG, AT ONCE
     Route: 048

REACTIONS (9)
  - Overdose [Recovered/Resolved]
  - Pulmonary oedema [Recovered/Resolved]
  - Hypotension [Recovered/Resolved]
  - Respiratory alkalosis [Recovered/Resolved]
  - Swelling face [Recovered/Resolved]
  - Intentional overdose [None]
  - Myocardial depression [Recovered/Resolved]
  - Suicide attempt [None]
  - Dizziness [None]
